FAERS Safety Report 15747695 (Version 1)
Quarter: 2018Q4

REPORT INFORMATION
  Report Type: Spontaneous
  Country: US (occurrence: US)
  Receive Date: 20181221
  Receipt Date: 20181221
  Transmission Date: 20190205
  Serious: Yes (Other)
  Sender: FDA-Public Use
  Company Number: US-DRREDDYS-USA/USA/18/0096044

PATIENT
  Age: 7 Year

DRUGS (1)
  1. SIROLIMUS. [Suspect]
     Active Substance: SIROLIMUS
     Indication: LYMPHATIC DISORDER
     Route: 065

REACTIONS (4)
  - Transaminases increased [Unknown]
  - Neutropenia [Unknown]
  - Toxicity to various agents [Unknown]
  - Off label use [Unknown]
